FAERS Safety Report 6549085-7 (Version None)
Quarter: 2010Q1

REPORT INFORMATION
  Report Type: 
  Country: None (occurrence: None)
  Receive Date: 20100125
  Receipt Date: 20100120
  Transmission Date: 20100710
  Serious: Yes (Life-Threatening, Hospitalization)
  Sender: FDA-Public Use
  Company Number: CH-ROCHE-678427

PATIENT
  Sex: Male
  Weight: 68 kg

DRUGS (5)
  1. ACTEMRA [Suspect]
     Indication: RHEUMATOID ARTHRITIS
     Dosage: FORM: INFUSION
     Route: 042
     Dates: start: 20090915, end: 20091020
  2. ALDACTONE [Concomitant]
  3. ATACAND [Concomitant]
  4. BELOC-ZOK [Concomitant]
  5. ASPIRIN [Concomitant]

REACTIONS (2)
  - PANCYTOPENIA [None]
  - PNEUMOCOCCAL SEPSIS [None]
